FAERS Safety Report 4804523-2 (Version None)
Quarter: 2005Q4

REPORT INFORMATION
  Report Type: 
  Country: None (occurrence: None)
  Receive Date: 20051018
  Receipt Date: 20051018
  Transmission Date: 20060501
  Serious: Yes (Life-Threatening, Hospitalization)
  Sender: FDA-Public Use
  Company Number: None

PATIENT
  Age: 31 Year
  Sex: Male
  Weight: 125.8 kg

DRUGS (1)
  1. INNOHEP [Suspect]
     Indication: THROMBOSIS PROPHYLAXIS
     Dosage: 4500IU SC QD
     Route: 058
     Dates: start: 20051006, end: 20051011

REACTIONS (7)
  - BACTERIAL INFECTION [None]
  - CONVULSION [None]
  - CULTURE URINE POSITIVE [None]
  - HEADACHE [None]
  - NUCLEAR MAGNETIC RESONANCE IMAGING BRAIN ABNORMAL [None]
  - SOMNOLENCE [None]
  - SUBDURAL EFFUSION [None]
